FAERS Safety Report 13664449 (Version 1)
Quarter: 2017Q2

REPORT INFORMATION
  Report Type: Other
  Country: US (occurrence: US)
  Receive Date: 20170619
  Receipt Date: 20170619
  Transmission Date: 20170830
  Serious: Yes (Hospitalization)
  Sender: FDA-Public Use
  Company Number: US-SHIRE-US201612708

PATIENT
  Sex: Female

DRUGS (8)
  1. NATPARA (PARATHYROID HORMONE) [Suspect]
     Active Substance: PARATHYROID HORMONE
     Dosage: 25 ?G, 1X/DAY:QD
     Route: 058
  2. NATPARA (PARATHYROID HORMONE) [Suspect]
     Active Substance: PARATHYROID HORMONE
     Dosage: 25 MCG TWICE A WEEK AND 50 MCG FOR THE OTHER REMAINING DAYS
     Route: 058
     Dates: start: 20160913
  3. NATPARA (PARATHYROID HORMONE) [Suspect]
     Active Substance: PARATHYROID HORMONE
     Dosage: 25 ?G, 1X/WEEK
     Route: 058
     Dates: start: 20160104, end: 20170527
  4. NATPARA (PARATHYROID HORMONE) [Suspect]
     Active Substance: PARATHYROID HORMONE
     Dosage: 50 ?G, 1X/DAY:QD
     Route: 058
     Dates: end: 20160104
  5. NATPARA (PARATHYROID HORMONE) [Suspect]
     Active Substance: PARATHYROID HORMONE
     Indication: HYPOPARATHYROIDISM
     Dosage: UNK, UNKNOWN
     Route: 058
     Dates: start: 20160104, end: 20170527
  6. NATPARA (PARATHYROID HORMONE) [Suspect]
     Active Substance: PARATHYROID HORMONE
     Indication: HYPOPARATHYROIDISM
     Dosage: 50 ?G, 1X/WEEK
     Route: 058
     Dates: start: 20160104, end: 20170527
  7. NATPARA (PARATHYROID HORMONE) [Suspect]
     Active Substance: PARATHYROID HORMONE
     Dosage: 25 ?G, OTHER (TWICE A WEEK)
     Route: 058
     Dates: start: 20160104, end: 20160913
  8. NATPARA (PARATHYROID HORMONE) [Suspect]
     Active Substance: PARATHYROID HORMONE
     Dosage: 25 ?G, QOD
     Route: 058
     Dates: start: 2017, end: 2017

REACTIONS (8)
  - Metabolic disorder [Unknown]
  - Inappropriate schedule of drug administration [Unknown]
  - Blood calcium decreased [Unknown]
  - Product quality issue [Recovered/Resolved]
  - Muscle spasms [Unknown]
  - Blood calcium increased [Recovered/Resolved]
  - Drug ineffective [Recovering/Resolving]
  - Fatigue [Unknown]
